FAERS Safety Report 25037114 (Version 1)
Quarter: 2025Q1

REPORT INFORMATION
  Report Type: Spontaneous
  Country: GB (occurrence: GB)
  Receive Date: 20250304
  Receipt Date: 20250304
  Transmission Date: 20250409
  Serious: Yes (Other)
  Sender: FERRING
  Company Number: GB-MHRA-TPP26013331C10563802YC1740500281874

PATIENT

DRUGS (4)
  1. DESMOPRESSIN [Suspect]
     Active Substance: DESMOPRESSIN
     Indication: Product used for unknown indication
     Dosage: 1 DOSAGE FORM, DAILY
     Route: 060
     Dates: start: 20250123, end: 20250222
  2. AMOXICILLIN [Concomitant]
     Active Substance: AMOXICILLIN
     Indication: Product used for unknown indication
     Dosage: 10 ML, 3 TIMES DAILY
     Route: 065
     Dates: start: 20250206, end: 20250211
  3. MELATONIN [Concomitant]
     Active Substance: MELATONIN
     Indication: Product used for unknown indication
     Dosage: 1 DOSAGE FORM, 1 TIME DAILY
     Route: 065
     Dates: start: 20240524
  4. METHYLPHENIDATE HYDROCHLORIDE [Concomitant]
     Active Substance: METHYLPHENIDATE HYDROCHLORIDE
     Indication: Product used for unknown indication
     Dosage: 40 MG, 1 TIME DAILY
     Route: 065
     Dates: start: 20241007

REACTIONS (2)
  - Alopecia [Recovered/Resolved]
  - Abnormal behaviour [Recovered/Resolved]
